FAERS Safety Report 8191785-X (Version None)
Quarter: 2012Q1

REPORT INFORMATION
  Report Type: 
  Country: None (occurrence: None)
  Receive Date: 20120307
  Receipt Date: 20120229
  Transmission Date: 20120608
  Serious: Yes (Other)
  Sender: FDA-Public Use
  Company Number: CHPA2012BR002476

PATIENT
  Age: 70 Year
  Sex: Male

DRUGS (2)
  1. CIBALENAA [Suspect]
     Dosage: 6 DF, UNK
     Route: 048
  2. CIBALENAA [Suspect]
     Indication: HEADACHE
     Dosage: UNK, UNK
     Route: 048

REACTIONS (10)
  - PAIN IN EXTREMITY [None]
  - TINNITUS [None]
  - MEMORY IMPAIRMENT [None]
  - OFF LABEL USE [None]
  - OVERDOSE [None]
  - INCORRECT DOSE ADMINISTERED [None]
  - TENDON DISORDER [None]
  - GAIT DISTURBANCE [None]
  - MUSCULOSKELETAL PAIN [None]
  - GENERALISED ERYTHEMA [None]
